FAERS Safety Report 5138668-7 (Version None)
Quarter: 2006Q4

REPORT INFORMATION
  Report Type: 
  Country: None (occurrence: None)
  Receive Date: 20061026
  Receipt Date: 20061026
  Transmission Date: 20070319
  Serious: Yes (Life-Threatening, Hospitalization, Disabling)
  Sender: FDA-Public Use
  Company Number: None

PATIENT
  Age: 47 Year
  Sex: Female
  Weight: 145 kg

DRUGS (1)
  1. PROPOFOL [Suspect]
     Indication: LIFE SUPPORT
     Dosage: TITRATED FOR SEDATION
     Dates: start: 20061012, end: 20061017

REACTIONS (3)
  - PHARMACEUTICAL PRODUCT COMPLAINT [None]
  - PYREXIA [None]
  - THERAPY NON-RESPONDER [None]
